FAERS Safety Report 4476452-8 (Version None)
Quarter: 2004Q4

REPORT INFORMATION
  Report Type: 
  Country: None (occurrence: None)
  Receive Date: 20041012
  Receipt Date: 20040927
  Transmission Date: 20050328
  Serious: Yes (Death)
  Sender: FDA-Public Use
  Company Number: 2004070498

PATIENT
  Age: 2 Year

DRUGS (2)
  1. PHENYTOIN [Suspect]
     Indication: ILL-DEFINED DISORDER
     Dosage: ORAL
     Route: 048
  2. PHENOBARBITAL TAB [Concomitant]

REACTIONS (2)
  - DRUG LEVEL INCREASED [None]
  - MEDICATION ERROR [None]
